FAERS Safety Report 9033993 (Version 1)
Quarter: 2013Q1

REPORT INFORMATION
  Report Type: Spontaneous
  Country: US (occurrence: US)
  Receive Date: 20130128
  Receipt Date: 20130128
  Transmission Date: 20140127
  Serious: Yes (Hospitalization)
  Sender: FDA-Public Use
  Company Number: US-AMGEN-USASP2012064171

PATIENT
  Age: 59 Year
  Sex: Male

DRUGS (1)
  1. ENBREL [Suspect]
     Indication: PSORIASIS
     Dosage: 50 MG, QWK
     Dates: start: 20060515, end: 201207

REACTIONS (5)
  - Heart rate increased [Not Recovered/Not Resolved]
  - Chills [Unknown]
  - Flushing [Unknown]
  - Confusional state [Unknown]
  - Disturbance in attention [Unknown]
